FAERS Safety Report 4684379-1 (Version None)
Quarter: 2005Q2

REPORT INFORMATION
  Report Type: 
  Country: None (occurrence: None)
  Receive Date: 20050531
  Receipt Date: 20040623
  Transmission Date: 20051028
  Serious: Yes (Hospitalization)
  Sender: FDA-Public Use
  Company Number: 200414511US

PATIENT
  Age: 72 Year
  Sex: Female

DRUGS (5)
  1. LOVENOX [Suspect]
     Indication: PROPHYLAXIS
     Dosage: 100 MG BID SC
     Route: 058
     Dates: start: 20040401
  2. LOVENOX [Suspect]
     Indication: PULMONARY THROMBOSIS
     Dosage: 100 MG BID SC
     Route: 058
     Dates: start: 20040401
  3. WARFARIN SODIUM [Suspect]
     Dates: start: 20040401, end: 20040401
  4. PLAVIX [Concomitant]
  5. OTHER MEDICATIONS NOS [Concomitant]

REACTIONS (4)
  - ABDOMINAL HAEMATOMA [None]
  - CONTUSION [None]
  - INJECTION SITE NODULE [None]
  - INJECTION SITE REACTION [None]
